FAERS Safety Report 8573616 (Version 2)
Quarter: 2012Q4

REPORT INFORMATION
  Report Type: Report from Study
  Country: AU (occurrence: AU)
  Receive Date: 20120522
  Receipt Date: 20121211
  Transmission Date: 20130627
  Serious: Yes (Death, Other)
  Sender: FDA-Public Use
  Company Number: AU-ROCHE-1070099

PATIENT
  Age: 86 Year
  Sex: Male

DRUGS (9)
  1. METHOXY POLYETHYLENE GLYCOL-EPOETIN BETA [Suspect]
     Indication: NEPHROGENIC ANAEMIA
     Route: 058
     Dates: start: 20110826, end: 20120229
  2. FOLIC ACID [Concomitant]
  3. TEMAZEPAM [Concomitant]
  4. DILATREND [Concomitant]
  5. PARACETAMOL [Concomitant]
  6. ATROPEN [Concomitant]
  7. MORPHINE [Concomitant]
  8. COLOXYL [Concomitant]
  9. OSTELIN [Concomitant]

REACTIONS (7)
  - Death [Fatal]
  - Hypophagia [Unknown]
  - Lethargy [Unknown]
  - Urinary tract infection [Unknown]
  - Oxygen saturation decreased [Unknown]
  - Mucosal dryness [Unknown]
  - Blood creatinine increased [Unknown]
